FAERS Safety Report 22150300 (Version 1)
Quarter: 2023Q1

REPORT INFORMATION
  Report Type: Spontaneous
  Country: CH (occurrence: CH)
  Receive Date: 20230329
  Receipt Date: 20230329
  Transmission Date: 20230418
  Serious: Yes (Hospitalization, Other)
  Sender: FDA-Public Use
  Company Number: None

PATIENT
  Age: 82 Year
  Sex: Female
  Weight: 62 kg

DRUGS (8)
  1. OPDIVO [Suspect]
     Active Substance: NIVOLUMAB
     Indication: Metastatic malignant melanoma
     Dosage: CYCLICAL
     Route: 042
     Dates: start: 20220914, end: 20221206
  2. YERVOY [Suspect]
     Active Substance: IPILIMUMAB
     Indication: Metastatic malignant melanoma
     Dosage: ZYKLUS 3: 201 MG ; CYCLICAL
     Route: 042
     Dates: start: 20221005, end: 20221206
  3. FLUTICASONE PROPIONATE [Concomitant]
     Active Substance: FLUTICASONE PROPIONATE
     Indication: Product used for unknown indication
     Dosage: 1-0-0-0 HUB
     Route: 055
  4. OXIS [Concomitant]
     Active Substance: FORMOTEROL FUMARATE
     Indication: Product used for unknown indication
     Route: 055
  5. ATORVASTATIN [Concomitant]
     Active Substance: ATORVASTATIN
     Indication: Product used for unknown indication
     Dosage: 0-0-0.5-0
     Route: 048
  6. ELTROXIN LF [Concomitant]
     Indication: Product used for unknown indication
     Route: 048
  7. METOCLOPRAMIDE HYDROCHLORIDE [Concomitant]
     Active Substance: METOCLOPRAMIDE HYDROCHLORIDE
     Indication: Product used for unknown indication
     Route: 048
  8. BUDESONIDE [Concomitant]
     Active Substance: BUDESONIDE
     Indication: Product used for unknown indication
     Route: 045

REACTIONS (11)
  - Immune-mediated enterocolitis [Recovering/Resolving]
  - Immune-mediated hypophysitis [Recovering/Resolving]
  - Hypoglycaemia [Unknown]
  - Hypokalaemia [Recovered/Resolved]
  - Hypophosphataemia [Recovered/Resolved]
  - Diverticulitis [Unknown]
  - Systemic inflammatory response syndrome [Unknown]
  - Acute kidney injury [Unknown]
  - Hypotension [Unknown]
  - Liver disorder [Unknown]
  - Intentional product use issue [Unknown]

NARRATIVE: CASE EVENT DATE: 20221221
